FAERS Safety Report 4977969-X (Version None)
Quarter: 2006Q2

REPORT INFORMATION
  Report Type: 
  Country: None (occurrence: None)
  Receive Date: 20060420
  Receipt Date: 20060413
  Transmission Date: 20061013
  Serious: Yes (Other)
  Sender: FDA-Public Use
  Company Number: 2006AC00733

PATIENT
  Sex: Female

DRUGS (1)
  1. FASLODEX [Suspect]
     Indication: BREAST CANCER
     Route: 030

REACTIONS (3)
  - INJECTION SITE INFLAMMATION [None]
  - SKIN REACTION [None]
  - TUMOUR FLARE [None]
